FAERS Safety Report 7224778-7 (Version None)
Quarter: 2010Q4

REPORT INFORMATION
  Report Type: 
  Country: None (occurrence: None)
  Receive Date: 20101126
  Receipt Date: 20100902
  Transmission Date: 20110411
  Serious: No
  Sender: FDA-Public Use
  Company Number: 314383

PATIENT
  Sex: Male

DRUGS (3)
  1. VICTOZA [Suspect]
     Indication: PRODUCT USED FOR UNKNOWN INDICATION
     Dosage: 0.6 MG, SUBCUTANEOUS ; 1.2 MG, SUBCUTANEOUS ; 1.8 MG, SUBCUTANEOUS
     Route: 058
     Dates: start: 20100810
  2. VICTOZA [Suspect]
     Indication: PRODUCT USED FOR UNKNOWN INDICATION
     Dosage: 0.6 MG, SUBCUTANEOUS ; 1.2 MG, SUBCUTANEOUS ; 1.8 MG, SUBCUTANEOUS
     Route: 058
     Dates: start: 20100818
  3. VICTOZA [Suspect]
     Indication: PRODUCT USED FOR UNKNOWN INDICATION
     Dosage: 0.6 MG, SUBCUTANEOUS ; 1.2 MG, SUBCUTANEOUS ; 1.8 MG, SUBCUTANEOUS
     Route: 058
     Dates: start: 20100824

REACTIONS (5)
  - APHAGIA [None]
  - DECREASED APPETITE [None]
  - FEELING ABNORMAL [None]
  - HEADACHE [None]
  - WEIGHT DECREASED [None]
